FAERS Safety Report 4666287-5 (Version None)
Quarter: 2005Q2

REPORT INFORMATION
  Report Type: 
  Country: None (occurrence: None)
  Receive Date: 20050518
  Receipt Date: 20050510
  Transmission Date: 20051028
  Serious: Yes (Other)
  Sender: FDA-Public Use
  Company Number: CIP05001010

PATIENT
  Age: 60 Year
  Sex: Male

DRUGS (6)
  1. ACTONEL [Suspect]
     Indication: OSTEOPOROSIS
     Dosage: 35 MG ONCE WEEKLY, ORAL
     Route: 048
     Dates: start: 20050411
  2. DIAFORMIN (METFORMIN HYDROCHLORIDE) [Concomitant]
  3. AMARYL [Concomitant]
  4. VIAGRA [Concomitant]
  5. RAMIPRIL [Concomitant]
  6. CARDOL (SOTALOL HYDROCHLORIDE) [Concomitant]

REACTIONS (1)
  - BLOOD GLUCOSE INCREASED [None]
